FAERS Safety Report 4707721-1 (Version None)
Quarter: 2005Q2

REPORT INFORMATION
  Report Type: 
  Country: None (occurrence: None)
  Receive Date: 20050629
  Receipt Date: 20050516
  Transmission Date: 20051028
  Serious: No
  Sender: FDA-Public Use
  Company Number: 05P-163-0300596-00

PATIENT
  Age: 55 Year
  Sex: Female
  Weight: 58.9676 kg

DRUGS (4)
  1. HUMIRA [Suspect]
     Indication: RHEUMATOID ARTHRITIS
     Dosage: 40 MG, 1 IN 2 WK, SUBCUTANEOUS
     Route: 058
     Dates: start: 20040101, end: 20050301
  2. PANTOPRAZOLE [Concomitant]
  3. METHYLPREDNISOLONE 16MG TAB [Concomitant]
  4. ESTRADIOL [Concomitant]

REACTIONS (2)
  - CONTUSION [None]
  - RECTAL HAEMORRHAGE [None]
